FAERS Safety Report 9520235 (Version 1)
Quarter: 2013Q1

REPORT INFORMATION
  Report Type: Spontaneous
  Country: US (occurrence: None)
  Receive Date: 20130305
  Receipt Date: 20130305
  Transmission Date: 20140127
  Serious: Yes (Other)
  Sender: FDA-Public Use
  Company Number: 163-21880-12022566

PATIENT
  Age: 87 Year
  Sex: Female
  Weight: 72.58 kg

DRUGS (2)
  1. REVLIMID [Suspect]
     Indication: MYELODYSPLASTIC SYNDROME
     Dosage: 5MG, DAILY FOR 21 DAYS THEN 7
     Route: 048
     Dates: start: 20100319, end: 20110210
  2. LISINOPRIL (LISINOPRIL) [Concomitant]

REACTIONS (3)
  - Cataract [None]
  - Proteinuria [None]
  - Thrombocytopenia [None]
